FAERS Safety Report 6439060-5 (Version None)
Quarter: 2009Q4

REPORT INFORMATION
  Report Type: 
  Country: None (occurrence: None)
  Receive Date: 20091112
  Receipt Date: 20080805
  Transmission Date: 20100525
  Serious: Yes (Hospitalization, Other)
  Sender: FDA-Public Use
  Company Number: 2008BH008294

PATIENT
  Age: 49 Year
  Sex: Female

DRUGS (13)
  1. GAMMAGARD LIQUID [Suspect]
     Indication: CEREBELLAR ATAXIA
     Dosage: 50 GM; EVERY DAY; IV
     Route: 042
     Dates: start: 20080721, end: 20080722
  2. GAMMAGARD LIQUID [Suspect]
  3. GAMMAGARD LIQUID [Suspect]
  4. PREDNISONE [Concomitant]
  5. ZANTAC [Concomitant]
  6. ADVAIR DISKUS 100/50 [Concomitant]
  7. ALLEGRA [Concomitant]
  8. AMINOPYRIDINE [Concomitant]
  9. OMEPRAZOLE [Concomitant]
  10. DIAZEPAM [Concomitant]
  11. FLONASE [Concomitant]
  12. TRAZODONE HCL [Concomitant]
  13. MULTI-VITAMINS [Concomitant]

REACTIONS (1)
  - MENINGITIS ASEPTIC [None]
